FAERS Safety Report 9498180 (Version 1)
Quarter: 2013Q3

REPORT INFORMATION
  Report Type: Spontaneous
  Country: CA (occurrence: CA)
  Receive Date: 20130904
  Receipt Date: 20130904
  Transmission Date: 20140515
  Serious: Yes (Hospitalization, Other)
  Sender: FDA-Public Use
  Company Number: CA-ELI_LILLY_AND_COMPANY-CA201308007412

PATIENT
  Sex: Male

DRUGS (3)
  1. HUMALOG LISPRO [Suspect]
  2. HUMALOG LISPRO [Suspect]
  3. HUMALOG LISPRO [Suspect]

REACTIONS (7)
  - Vomiting projectile [Recovered/Resolved]
  - Weight decreased [Recovered/Resolved]
  - Tremor [Recovered/Resolved]
  - Feeling cold [Recovered/Resolved]
  - Asthenia [Recovered/Resolved]
  - Drug hypersensitivity [Recovered/Resolved]
  - Blood glucose increased [Recovered/Resolved]
